FAERS Safety Report 15567202 (Version 1)
Quarter: 2018Q4

REPORT INFORMATION
  Report Type: Spontaneous
  Country: FR (occurrence: FR)
  Receive Date: 20181030
  Receipt Date: 20181030
  Transmission Date: 20190205
  Serious: Yes (Other)
  Sender: FDA-Public Use
  Company Number: FR-ASTRAZENECA-2018SF41525

PATIENT
  Age: 62 Year
  Sex: Female

DRUGS (6)
  1. ATARAX [Concomitant]
     Active Substance: HYDROXYZINE HYDROCHLORIDE
  2. LEXOMIL [Concomitant]
     Active Substance: BROMAZEPAM
     Dosage: 6 MG AT A QUART OF TABLET DAILY
  3. LIDOCAINE. [Concomitant]
     Active Substance: LIDOCAINE
  4. TRANXENE [Concomitant]
     Active Substance: CLORAZEPATE DIPOTASSIUM
  5. INEXIUM [Suspect]
     Active Substance: ESOMEPRAZOLE
     Indication: GASTROOESOPHAGEAL REFLUX DISEASE
     Route: 048
     Dates: start: 2016
  6. DOLIPRANE [Concomitant]
     Active Substance: ACETAMINOPHEN

REACTIONS (17)
  - Weight increased [Unknown]
  - Nausea [Unknown]
  - Off label use [Unknown]
  - Erythema [Unknown]
  - Toothache [Unknown]
  - Procedural complication [Unknown]
  - Cardiac disorder [Unknown]
  - Blood potassium increased [Unknown]
  - Alopecia [Unknown]
  - Abdominal pain upper [Unknown]
  - Peripheral swelling [Unknown]
  - Blood cholesterol increased [Unknown]
  - Therapy cessation [Unknown]
  - Skin irritation [Unknown]
  - Tremor [Unknown]
  - Malaise [Unknown]
  - Somnolence [Unknown]

NARRATIVE: CASE EVENT DATE: 2016
